FAERS Safety Report 7422206-X (Version None)
Quarter: 2011Q2

REPORT INFORMATION
  Report Type: 
  Country: None (occurrence: None)
  Receive Date: 20110418
  Receipt Date: 20110407
  Transmission Date: 20111010
  Serious: Yes (Other)
  Sender: FDA-Public Use
  Company Number: US-CEPHALON-2009029426

PATIENT
  Age: 70 Year
  Sex: Male
  Weight: 66 kg

DRUGS (10)
  1. FLOMAX [Concomitant]
     Dates: start: 20090201
  2. NAMENDA [Concomitant]
     Dates: start: 20090901
  3. FOSAMAX [Concomitant]
     Dates: start: 20090501
  4. LISINOPRIL [Concomitant]
     Dates: start: 20070101, end: 20091124
  5. CARBIDOPA + LEVODOPA [Concomitant]
     Dates: start: 20040101
  6. FUROSEMIDE [Concomitant]
  7. ARICEPT [Concomitant]
     Dates: start: 20090501
  8. PROVIGIL [Suspect]
     Indication: SOMNOLENCE
     Route: 048
     Dates: start: 20091116, end: 20091122
  9. TRIHEXYPHENIDYL [Concomitant]
     Dates: start: 20040101
  10. COLCHICINE [Concomitant]
     Dates: start: 20070101

REACTIONS (5)
  - HALLUCINATION [None]
  - SWOLLEN TONGUE [None]
  - ABNORMAL BEHAVIOUR [None]
  - RASH [None]
  - SPEECH DISORDER [None]
